FAERS Safety Report 8488276-5 (Version None)
Quarter: 2012Q3

REPORT INFORMATION
  Report Type: 
  Country: None (occurrence: None)
  Receive Date: 20120705
  Receipt Date: 20120625
  Transmission Date: 20120928
  Serious: Yes (Life-Threatening, Hospitalization)
  Sender: FDA-Public Use
  Company Number: IT-PFIZER INC-2012117354

PATIENT
  Age: 71 Year
  Sex: Male
  Weight: 80 kg

DRUGS (4)
  1. AMLODIPINE [Concomitant]
     Indication: HYPERTENSION
     Dosage: UNK
  2. LISINOPRIL [Concomitant]
     Indication: HYPERTENSION
     Dosage: UNK
  3. AXITINIB [Suspect]
     Indication: HEPATIC NEOPLASM MALIGNANT
     Dosage: 3 MG, 2X/DAY
     Route: 048
     Dates: start: 20120503, end: 20120511
  4. HYDROCHLOROTHIAZIDE [Concomitant]
     Indication: HYPERTENSION
     Dosage: UNK

REACTIONS (1)
  - COMA HEPATIC [None]
